FAERS Safety Report 8080044-1 (Version None)
Quarter: 2012Q1

REPORT INFORMATION
  Report Type: 
  Country: None (occurrence: None)
  Receive Date: 20120128
  Receipt Date: 20110812
  Transmission Date: 20120608
  Serious: No
  Sender: FDA-Public Use
  Company Number: US-ABBOTT-11P-163-0845957-00

PATIENT
  Sex: Female

DRUGS (3)
  1. PENTASA [Concomitant]
     Indication: CROHN'S DISEASE
     Dosage: 8 PILLS
  2. HUMIRA [Suspect]
     Dosage: 80 MG DAY 15
  3. HUMIRA [Suspect]
     Indication: CROHN'S DISEASE
     Dosage: 160 MG DAY 1
     Dates: start: 20110715, end: 20110715

REACTIONS (1)
  - EPISTAXIS [None]
